FAERS Safety Report 21742435 (Version 4)
Quarter: 2024Q4

REPORT INFORMATION
  Report Type: Report from Study
  Country: US (occurrence: US)
  Receive Date: 20221216
  Receipt Date: 20241108
  Transmission Date: 20250115
  Serious: No
  Sender: NOVARTIS
  Company Number: US-002147023-NVSC2022US290631

PATIENT
  Sex: Female

DRUGS (1)
  1. COSENTYX [Suspect]
     Active Substance: SECUKINUMAB
     Indication: Psoriatic arthropathy
     Dosage: UNK (INJECTION)
     Route: 050

REACTIONS (4)
  - Lacrimation increased [Unknown]
  - Inflammatory marker increased [Unknown]
  - Illness [Unknown]
  - Tonsillitis [Unknown]
